FAERS Safety Report 25101759 (Version 2)
Quarter: 2025Q1

REPORT INFORMATION
  Report Type: Spontaneous
  Country: US (occurrence: US)
  Receive Date: 20250320
  Receipt Date: 20250321
  Transmission Date: 20250408
  Serious: No
  Sender: PFIZER
  Company Number: US-PFIZER INC-202500061083

PATIENT
  Sex: Female

DRUGS (2)
  1. AZULFIDINE [Suspect]
     Active Substance: SULFASALAZINE
     Dosage: 500 MG, 2X/DAY
  2. AZULFIDINE [Suspect]
     Active Substance: SULFASALAZINE
     Dosage: 500 MG, 1X/DAY

REACTIONS (2)
  - Ageusia [Not Recovered/Not Resolved]
  - Suspected counterfeit product [Unknown]

NARRATIVE: CASE EVENT DATE: 20250101
